FAERS Safety Report 11583068 (Version 1)
Quarter: 2015Q4

REPORT INFORMATION
  Report Type: Report from Study
  Country: DE (occurrence: DE)
  Receive Date: 20151001
  Receipt Date: 20151001
  Transmission Date: 20160304
  Serious: Yes (Death, Hospitalization, Other)
  Sender: FDA-Public Use
  Company Number: DE-ROCHE-1639859

PATIENT

DRUGS (6)
  1. PREDNISOLONE. [Suspect]
     Active Substance: PREDNISOLONE
     Indication: IMMUNOSUPPRESSION
     Dosage: 300 MG /M2 BODY SURFACE AREA (BSA)
     Route: 042
  2. CYCLOSPORINE. [Suspect]
     Active Substance: CYCLOSPORINE
     Indication: IMMUNOSUPPRESSION
     Route: 065
  3. BASILIXIMAB [Suspect]
     Active Substance: BASILIXIMAB
     Indication: IMMUNOSUPPRESSION
     Route: 065
  4. METHYLPREDNISOLONE. [Suspect]
     Active Substance: METHYLPREDNISOLONE
     Indication: IMMUNOSUPPRESSION
     Dosage: 300 MG /M2 BODY SURFACE AREA (BSA)
     Route: 042
  5. TACROLIMUS. [Suspect]
     Active Substance: TACROLIMUS
     Indication: IMMUNOSUPPRESSION
     Route: 065
  6. MYCOPHENOLATE MOFETIL. [Suspect]
     Active Substance: MYCOPHENOLATE MOFETIL
     Indication: IMMUNOSUPPRESSION
     Route: 065

REACTIONS (12)
  - Leukopenia [Unknown]
  - Epstein-Barr virus infection [Unknown]
  - Nephropathy toxic [Unknown]
  - Viraemia [Unknown]
  - Gastrointestinal toxicity [Unknown]
  - Cytomegalovirus syndrome [Unknown]
  - Skin papilloma [Unknown]
  - Rhabdomyosarcoma [Unknown]
  - Sepsis [Fatal]
  - Polyomavirus-associated nephropathy [Unknown]
  - Drug resistance [Unknown]
  - Hypertrichosis [Unknown]
